FAERS Safety Report 5099205-9 (Version None)
Quarter: 2006Q3

REPORT INFORMATION
  Report Type: 
  Country: None (occurrence: None)
  Receive Date: 20060731
  Receipt Date: 20050831
  Transmission Date: 20061208
  Serious: No
  Sender: FDA-Public Use
  Company Number: 217137

PATIENT
  Age: 77 Year
  Sex: Female

DRUGS (2)
  1. HERCEPTIN [Suspect]
     Indication: OSTEITIS DEFORMANS
     Dosage: SEE IMAGE
     Dates: start: 20050819
  2. TAXOL [Concomitant]

REACTIONS (1)
  - INFUSION RELATED REACTION [None]
